FAERS Safety Report 15030226 (Version 1)
Quarter: 2018Q2

REPORT INFORMATION
  Report Type: Spontaneous
  Country: DE (occurrence: DE)
  Receive Date: 20180619
  Receipt Date: 20180619
  Transmission Date: 20180711
  Serious: Yes (Hospitalization)
  Sender: FDA-Public Use
  Company Number: DE-PFIZER INC-2018244439

PATIENT
  Age: 78 Year
  Sex: Female

DRUGS (5)
  1. IBUPROFEN. [Suspect]
     Active Substance: IBUPROFEN
     Dosage: UNK MG, 1-1-1
  2. FORMOTEROL [Suspect]
     Active Substance: FORMOTEROL
     Dosage: 12 UG, 1-1-1-0
  3. METHOCARBAMOL. [Suspect]
     Active Substance: METHOCARBAMOL
     Dosage: 750 MG, 2-2-2-0
  4. METAMIZOLE [Suspect]
     Active Substance: METAMIZOLE
     Dosage: UNK MG, 40, DROPS
  5. OPIPRAMOL [Suspect]
     Active Substance: OPIPRAMOL
     Dosage: 50 MG, 0-0-1-0

REACTIONS (2)
  - Nausea [Unknown]
  - Decreased appetite [Unknown]
